FAERS Safety Report 7305268-X (Version None)
Quarter: 2011Q1

REPORT INFORMATION
  Report Type: 
  Country: None (occurrence: None)
  Receive Date: 20110222
  Receipt Date: 20110212
  Transmission Date: 20110831
  Serious: Yes (Other)
  Sender: FDA-Public Use
  Company Number: FR-PFIZER INC-2011032126

PATIENT
  Age: 64 Year
  Sex: Female

DRUGS (3)
  1. TRIFLUCAN [Suspect]
     Indication: COUGH
  2. TRIFLUCAN [Suspect]
     Indication: FUNGAL INFECTION
     Dosage: 50 MG, 2X/DAY
  3. CLARITIN [Suspect]

REACTIONS (11)
  - SWOLLEN TONGUE [None]
  - BRONCHIAL IRRITATION [None]
  - PAIN [None]
  - DYSPNOEA [None]
  - OEDEMA [None]
  - AUTOIMMUNE DISORDER [None]
  - PRURITUS [None]
  - URTICARIA [None]
  - RASH [None]
  - TENDONITIS [None]
  - COUGH [None]
